FAERS Safety Report 22383119 (Version 1)
Quarter: 2023Q2

REPORT INFORMATION
  Report Type: Spontaneous
  Country: US (occurrence: US)
  Receive Date: 20230530
  Receipt Date: 20230530
  Transmission Date: 20230721
  Serious: Yes (Other)
  Sender: FDA-Public Use
  Company Number: US-BAYER-2023A070897

PATIENT
  Age: 54 Year
  Sex: Female

DRUGS (1)
  1. DOCUSATE SODIUM [Suspect]
     Active Substance: DOCUSATE SODIUM

REACTIONS (4)
  - Drug abuse [None]
  - Hypokalaemia [None]
  - Nephropathy [None]
  - End stage renal disease [None]
